FAERS Safety Report 15620055 (Version 1)
Quarter: 2018Q4

REPORT INFORMATION
  Report Type: Spontaneous
  Country: FR (occurrence: FR)
  Receive Date: 20181115
  Receipt Date: 20181115
  Transmission Date: 20190205
  Serious: Yes (Life-Threatening, Other)
  Sender: FDA-Public Use
  Company Number: FR-ACCORD-092440

PATIENT
  Age: 38 Year
  Sex: Male

DRUGS (10)
  1. CYCLOPHOSPHAMIDE. [Suspect]
     Active Substance: CYCLOPHOSPHAMIDE
     Dosage: CONDITIONING THERAPY FOR SECOND ASCT (60 MG/KG)
     Route: 065
  2. DEXAMETHASONE. [Suspect]
     Active Substance: DEXAMETHASONE
     Indication: CENTRAL NERVOUS SYSTEM LYMPHOMA
     Dosage: FROM 4 COURSES OF R-DIAM AT 2ND RELAPSE (40 MG D1 TO D4)
     Route: 065
  3. CYTARABINE/CYTARABINE HYDROCHLORIDE/CYTARABINE OCFOSFATE [Suspect]
     Active Substance: CYTARABINE
     Indication: CENTRAL NERVOUS SYSTEM LYMPHOMA
     Dosage: 4 COURSES OF R-DIAM (CYTARABIN 1500 MG/M2 X 2 /DAY ON D1-D2)
     Route: 065
  4. RITUXIMAB. [Suspect]
     Active Substance: RITUXIMAB
     Indication: CENTRAL NERVOUS SYSTEM LYMPHOMA
     Dosage: 4 COURSES OF R-DIAM (RITUXIMAB 375 MG/M2 IV AT D1)
     Route: 042
  5. CYCLOPHOSPHAMIDE. [Suspect]
     Active Substance: CYCLOPHOSPHAMIDE
     Indication: STEM CELL TRANSPLANT
     Dosage: 60 MG/KG, ON DAY -3 AND -2??CONDITIONING THERAPY FOR SECOND ASCT (60 MG/KG)
     Route: 065
  6. IFOSFAMIDE. [Suspect]
     Active Substance: IFOSFAMIDE
     Indication: CENTRAL NERVOUS SYSTEM LYMPHOMA
     Dosage: 4 COURSES OF R-DIAM (IFOSFAMIDE 1500 MG/M2  FROM  D1-D5)
     Route: 065
  7. METHOTREXATE. [Suspect]
     Active Substance: METHOTREXATE
     Indication: CENTRAL NERVOUS SYSTEM LYMPHOMA
     Dosage: FROM 4 COURSES OF R-DIAM AT 2ND RELAPSE (15 MG)
     Route: 037
  8. BUSULFAN. [Suspect]
     Active Substance: BUSULFAN
     Indication: STEM CELL TRANSPLANT
     Dosage: 0.8 MG/KG, QID (4/DAY) FROM DAY -6 TO -4
     Route: 042
  9. CYCLOPHOSPHAMIDE. [Suspect]
     Active Substance: CYCLOPHOSPHAMIDE
     Dosage: 2 CYCLES OF COPADEM INDUCTION (250 MG/M2 EVERY 12 HOURS)
     Route: 065
  10. THIOTEPA. [Suspect]
     Active Substance: THIOTEPA
     Indication: STEM CELL TRANSPLANT
     Dosage: 250 MG/M2 FROM  DAY-9 TO -7
     Route: 065

REACTIONS (3)
  - Pseudomonal sepsis [Recovering/Resolving]
  - Mucosal inflammation [Recovering/Resolving]
  - Enterobacter sepsis [Recovering/Resolving]
